FAERS Safety Report 24378296 (Version 1)
Quarter: 2024Q3

REPORT INFORMATION
  Report Type: Spontaneous
  Country: US (occurrence: None)
  Receive Date: 20240927
  Receipt Date: 20240927
  Transmission Date: 20241017
  Serious: Yes (Other)
  Sender: Public
  Company Number: None

PATIENT
  Age: 33 Year
  Sex: Male
  Weight: 103.5 kg

DRUGS (1)
  1. .DELTA.9-TETRAHYDROCANNABINOL\HERBALS\MUSHROOMS UNSPECIFIED [Suspect]
     Active Substance: .DELTA.9-TETRAHYDROCANNABINOL\HERBALS\MUSHROOMS UNSPECIFIED
     Dates: start: 20240920, end: 20240920

REACTIONS (1)
  - Seizure [None]

NARRATIVE: CASE EVENT DATE: 20240920
